FAERS Safety Report 20126072 (Version 3)
Quarter: 2022Q3

REPORT INFORMATION
  Report Type: Spontaneous
  Country: US (occurrence: US)
  Receive Date: 20211129
  Receipt Date: 20220915
  Transmission Date: 20221027
  Serious: No
  Sender: FDA-Public Use
  Company Number: US-LUPIN PHARMACEUTICALS INC.-2021-23016

PATIENT
  Sex: Male

DRUGS (1)
  1. ALBUTEROL SULFATE [Suspect]
     Active Substance: ALBUTEROL SULFATE
     Indication: Hypersensitivity
     Dosage: UNK (2 PUFFS EVERY 4 TO 6 HOURS.)
     Dates: start: 20211025

REACTIONS (4)
  - Device information output issue [Unknown]
  - Wrong technique in product usage process [Unknown]
  - Off label use [Unknown]
  - No adverse event [Unknown]
